FAERS Safety Report 9261910 (Version 2)
Quarter: 2013Q2

REPORT INFORMATION
  Report Type: Report from Study
  Country: BE (occurrence: BE)
  Receive Date: 20130429
  Receipt Date: 20130520
  Transmission Date: 20140414
  Serious: Yes (Hospitalization)
  Sender: FDA-Public Use
  Company Number: BE-BAXTER-2013BAX015036

PATIENT
  Age: 76 Year
  Sex: Male
  Weight: 53 kg

DRUGS (19)
  1. ENDOXAN 100 MG - POUDRE POUR SOLUTION INJECTABLE [Suspect]
     Indication: B-CELL LYMPHOMA
     Route: 042
     Dates: start: 20110825
  2. ENDOXAN 100 MG - POUDRE POUR SOLUTION INJECTABLE [Suspect]
     Route: 042
     Dates: start: 20110913
  3. ENDOXAN 100 MG - POUDRE POUR SOLUTION INJECTABLE [Suspect]
     Route: 042
     Dates: start: 20111004
  4. RITUXIMAB [Suspect]
     Indication: B-CELL LYMPHOMA
     Route: 042
     Dates: start: 20110825
  5. RITUXIMAB [Suspect]
     Route: 042
     Dates: start: 20110913
  6. RITUXIMAB [Suspect]
     Route: 042
     Dates: start: 20120130
  7. RITUXIMAB [Suspect]
     Route: 042
     Dates: start: 20111004
  8. PREDNISONE [Suspect]
     Indication: B-CELL LYMPHOMA
     Route: 048
     Dates: start: 20110825
  9. PREDNISONE [Suspect]
     Route: 048
     Dates: start: 20110913
  10. PREDNISONE [Suspect]
     Route: 048
     Dates: start: 20111004
  11. DOXORUBICIN [Suspect]
     Indication: B-CELL LYMPHOMA
     Route: 042
     Dates: start: 20110825
  12. DOXORUBICIN [Suspect]
     Route: 042
     Dates: start: 20110913
  13. DOXORUBICIN [Suspect]
     Route: 042
     Dates: start: 20111004
  14. VINCRISTINE [Suspect]
     Indication: B-CELL LYMPHOMA
     Route: 042
     Dates: start: 20110825
  15. VINCRISTINE [Suspect]
     Route: 042
     Dates: start: 20110913
  16. VINCRISTINE [Suspect]
     Route: 042
     Dates: start: 20111004
  17. PEGFILGRASTIM [Suspect]
     Indication: B-CELL LYMPHOMA
     Route: 058
     Dates: start: 20110826
  18. PEGFILGRASTIM [Suspect]
     Route: 058
     Dates: start: 20110914
  19. PEGFILGRASTIM [Suspect]
     Route: 058
     Dates: start: 20111005

REACTIONS (1)
  - Small intestinal obstruction [Recovered/Resolved]
